FAERS Safety Report 20860813 (Version 1)
Quarter: 2022Q2

REPORT INFORMATION
  Report Type: Spontaneous
  Country: US (occurrence: None)
  Receive Date: 20220521
  Receipt Date: 20220521
  Transmission Date: 20220721
  Serious: Yes (Other)
  Sender: FDA-Public Use
  Company Number: None

PATIENT
  Age: 72 Year
  Sex: Female

DRUGS (1)
  1. REVLIMID [Suspect]
     Active Substance: LENALIDOMIDE
     Indication: Plasma cell myeloma
     Dosage: FREQUENCY : DAILY;?
     Route: 048
     Dates: start: 20220412, end: 20220420

REACTIONS (8)
  - Chest pain [None]
  - Back pain [None]
  - Arthralgia [None]
  - Asthenia [None]
  - Fatigue [None]
  - Headache [None]
  - Decreased appetite [None]
  - Therapy cessation [None]

NARRATIVE: CASE EVENT DATE: 20220420
